FAERS Safety Report 6987608-4 (Version None)
Quarter: 2010Q3

REPORT INFORMATION
  Report Type: 
  Country: None (occurrence: None)
  Receive Date: 20100916
  Receipt Date: 20100903
  Transmission Date: 20110219
  Serious: Yes (Other)
  Sender: FDA-Public Use
  Company Number: IT-CELGENEUS-083-20785-10090393

PATIENT

DRUGS (19)
  1. THALIDOMIDE [Suspect]
     Indication: MULTIPLE MYELOMA
     Route: 048
     Dates: start: 20081125
  2. THALIDOMIDE [Suspect]
     Route: 048
     Dates: start: 20090107
  3. VELCADE [Concomitant]
     Indication: MULTIPLE MYELOMA
     Route: 065
     Dates: start: 20081022
  4. VELCADE [Concomitant]
     Route: 065
     Dates: start: 20081125
  5. VELCADE [Concomitant]
     Route: 065
     Dates: start: 20090107
  6. SOLDESAM [Concomitant]
     Indication: MULTIPLE MYELOMA
     Route: 065
     Dates: start: 20081022
  7. DEXAMETHASONE [Concomitant]
     Indication: MULTIPLE MYELOMA
     Route: 065
     Dates: start: 20081125
  8. DEXAMETHASONE [Concomitant]
     Route: 065
     Dates: start: 20090107
  9. ZOMETA [Concomitant]
     Indication: MULTIPLE MYELOMA
     Dosage: 1 VIAL
     Route: 065
     Dates: start: 20081126, end: 20081126
  10. ZOMETA [Concomitant]
     Dosage: 1 VIAL
     Route: 065
     Dates: start: 20081203, end: 20081203
  11. ZOMETA [Concomitant]
     Dosage: 1 VIAL
     Route: 065
     Dates: start: 20081223, end: 20081223
  12. ZOMETA [Concomitant]
     Dosage: 1 VIAL
     Route: 065
     Dates: start: 20090128, end: 20090128
  13. ZOMETA [Concomitant]
     Route: 065
     Dates: start: 20090306, end: 20090306
  14. ZOMETA [Concomitant]
     Route: 065
     Dates: start: 20090407, end: 20090407
  15. ZOMETA [Concomitant]
     Route: 065
     Dates: start: 20090430, end: 20090430
  16. ENDOXAN [Concomitant]
     Indication: MULTIPLE MYELOMA
     Dosage: 4G/M2
     Route: 065
     Dates: start: 20090305, end: 20090305
  17. MELPHALAN HYDROCHLORIDE [Concomitant]
     Indication: MULTIPLE MYELOMA
     Route: 065
     Dates: start: 20090408
  18. PEGFILGRASTIM [Concomitant]
     Indication: PRODUCT USED FOR UNKNOWN INDICATION
     Route: 065
     Dates: start: 20090411, end: 20090411
  19. NEUPOGEN [Concomitant]
     Indication: PRODUCT USED FOR UNKNOWN INDICATION
     Route: 065
     Dates: start: 20090424, end: 20090428

REACTIONS (5)
  - BACK PAIN [None]
  - FALL [None]
  - GASTROINTESTINAL INFLAMMATION [None]
  - HYPERTHERMIA [None]
  - TRANSAMINASES INCREASED [None]
